FAERS Safety Report 6342179-0 (Version None)
Quarter: 2009Q3

REPORT INFORMATION
  Report Type: 
  Country: None (occurrence: None)
  Receive Date: 20090903
  Receipt Date: 20090903
  Transmission Date: 20100115
  Serious: Yes (Other)
  Sender: FDA-Public Use
  Company Number: None

PATIENT
  Sex: Female
  Weight: 100.2449 kg

DRUGS (1)
  1. LYRICA [Suspect]
     Dosage: BID  PO
     Route: 048

REACTIONS (1)
  - DEAFNESS TRANSITORY [None]
